FAERS Safety Report 8599831-6 (Version None)
Quarter: 2012Q3

REPORT INFORMATION
  Report Type: 
  Country: None (occurrence: None)
  Receive Date: 20120816
  Receipt Date: 20120802
  Transmission Date: 20120928
  Serious: No
  Sender: FDA-Public Use
  Company Number: US-ASTRAZENECA-2012SE54839

PATIENT
  Age: 62 Year
  Sex: Male
  Weight: 95.3 kg

DRUGS (5)
  1. BRILINTA [Suspect]
     Route: 048
  2. ASPIRIN [Concomitant]
     Dosage: DAILY
  3. STATIN [Concomitant]
  4. METOPROLOL TARTRATE [Suspect]
     Route: 048
  5. METOPROLOL SUCCINATE [Suspect]
     Route: 048

REACTIONS (6)
  - LOSS OF BLADDER SENSATION [None]
  - FAECES DISCOLOURED [None]
  - ASTHENIA [None]
  - HAEMATOCHEZIA [None]
  - DYSPNOEA [None]
  - GAIT DISTURBANCE [None]
